FAERS Safety Report 5849935-3 (Version None)
Quarter: 2008Q3

REPORT INFORMATION
  Report Type: 
  Country: None (occurrence: None)
  Receive Date: 20080819
  Receipt Date: 20080811
  Transmission Date: 20090109
  Serious: Yes (Other)
  Sender: FDA-Public Use
  Company Number: TR-ABBOTT-08P-161-0469868-00

PATIENT
  Age: 24 Year
  Sex: Male

DRUGS (1)
  1. SIBUTRAMINE [Suspect]
     Indication: DRUG USE FOR UNKNOWN INDICATION
     Dosage: NOT REPORTED

REACTIONS (1)
  - ACUTE MYOCARDIAL INFARCTION [None]
